FAERS Safety Report 6196008-9 (Version None)
Quarter: 2009Q2

REPORT INFORMATION
  Report Type: 
  Country: None (occurrence: None)
  Receive Date: 20090520
  Receipt Date: 20051209
  Transmission Date: 20091009
  Serious: Yes (Death, Hospitalization)
  Sender: FDA-Public Use
  Company Number: NL-ROCHE-598398

PATIENT
  Sex: Male

DRUGS (9)
  1. CAPECITABINE [Suspect]
     Indication: COLORECTAL CANCER
     Dosage: GIVEN BID ON DAY 1 TO DAY 14 PER THREE WEEKS
     Route: 048
     Dates: start: 20041013, end: 20050201
  2. CAPECITABINE [Suspect]
     Route: 048
     Dates: start: 20050621, end: 20051020
  3. CAPECITABINE [Suspect]
     Dosage: GIVEN BID ON DAY 1 TO DAY 14 PER THREE WEEKS
     Route: 048
     Dates: end: 20051031
  4. OXALIPLATIN [Suspect]
     Indication: COLORECTAL CANCER
     Route: 042
     Dates: start: 20041013, end: 20050201
  5. OXALIPLATIN [Suspect]
     Route: 042
     Dates: start: 20050601, end: 20051020
  6. AMITRIPTLINE HYDROCHLORIDE TAB [Concomitant]
  7. NEXIUM [Concomitant]
  8. FUROSEMIDE [Concomitant]
  9. CODEINE [Concomitant]

REACTIONS (2)
  - DISEASE PROGRESSION [None]
  - MALIGNANT PLEURAL EFFUSION [None]
